FAERS Safety Report 5124723-4 (Version None)
Quarter: 2006Q4

REPORT INFORMATION
  Report Type: 
  Country: None (occurrence: None)
  Receive Date: 20061006
  Receipt Date: 20061006
  Transmission Date: 20070319
  Serious: Yes (Death, Hospitalization)
  Sender: FDA-Public Use
  Company Number: None

PATIENT
  Age: 13 Year
  Sex: Male

DRUGS (1)
  1. ADVAIR DISKUS 100/50 [Suspect]
     Indication: ASTHMA
     Dosage: NOT KNOWN
     Route: 065

REACTIONS (31)
  - ANOXIC ENCEPHALOPATHY [None]
  - BLOOD PH DECREASED [None]
  - BLOOD POTASSIUM DECREASED [None]
  - BRAIN OEDEMA [None]
  - CEREBRAL ISCHAEMIA [None]
  - CHEST DISCOMFORT [None]
  - COMA [None]
  - CONVULSION [None]
  - CORNEAL REFLEX DECREASED [None]
  - COUGH [None]
  - DIABETES INSIPIDUS [None]
  - DYSPNOEA [None]
  - ERYTHEMA [None]
  - FALL [None]
  - FUMBLING [None]
  - HAEMOGLOBIN DECREASED [None]
  - HEART RATE DECREASED [None]
  - HYPERGLYCAEMIA [None]
  - HYPERNATRAEMIA [None]
  - LOSS OF CONSCIOUSNESS [None]
  - LUNG HYPERINFLATION [None]
  - METABOLIC ACIDOSIS [None]
  - MYDRIASIS [None]
  - PULSE ABSENT [None]
  - PUPIL FIXED [None]
  - REFUSAL OF TREATMENT BY RELATIVE [None]
  - RESPIRATORY ARREST [None]
  - RESPIRATORY DISORDER [None]
  - RETCHING [None]
  - SUBARACHNOID HAEMORRHAGE [None]
  - URTICARIA [None]
